FAERS Safety Report 6150048-4 (Version None)
Quarter: 2009Q2

REPORT INFORMATION
  Report Type: 
  Country: None (occurrence: None)
  Receive Date: 20090407
  Receipt Date: 20090407
  Transmission Date: 20091009
  Serious: Yes (Life-Threatening, Hospitalization)
  Sender: FDA-Public Use
  Company Number: None

PATIENT
  Age: 44 Year
  Sex: Male
  Weight: 75.2 kg

DRUGS (1)
  1. SUCCINYLCHOLINE 200MG SANDOZ [Suspect]
     Indication: ENDOTRACHEAL INTUBATION
     Dosage: 1 TIME ONLY IV
     Route: 042
     Dates: start: 20090405, end: 20090405

REACTIONS (2)
  - DRUG HYPERSENSITIVITY [None]
  - HYPERTHERMIA MALIGNANT [None]
